FAERS Safety Report 17041652 (Version 1)
Quarter: 2019Q4

REPORT INFORMATION
  Report Type: Spontaneous
  Country: IT (occurrence: IT)
  Receive Date: 20191118
  Receipt Date: 20191118
  Transmission Date: 20200122
  Serious: Yes (Other)
  Sender: FDA-Public Use
  Company Number: IT-AMGEN-ITASP2019188200

PATIENT

DRUGS (1)
  1. ROMIPLOSTIM [Suspect]
     Active Substance: ROMIPLOSTIM
     Indication: IMMUNE THROMBOCYTOPENIC PURPURA
     Dosage: UNK
     Route: 065

REACTIONS (7)
  - Thrombocytosis [Unknown]
  - Cerebral artery thrombosis [Unknown]
  - Peripheral artery thrombosis [Unknown]
  - Acute coronary syndrome [Unknown]
  - Pulmonary embolism [Unknown]
  - Venous thrombosis [Unknown]
  - Treatment failure [Unknown]
